FAERS Safety Report 8614621-3 (Version None)
Quarter: 2012Q3

REPORT INFORMATION
  Report Type: 
  Country: None (occurrence: None)
  Receive Date: 20120823
  Receipt Date: 20120816
  Transmission Date: 20120928
  Serious: Yes (Hospitalization)
  Sender: FDA-Public Use
  Company Number: PHHY2012JP022714

PATIENT
  Age: 66 Year
  Sex: Female

DRUGS (5)
  1. DIOVAN [Suspect]
     Dosage: 20 TABLETS ONCE
     Route: 048
     Dates: start: 20120312
  2. CALBLOCK [Suspect]
     Indication: INSOMNIA
     Route: 048
  3. METOPROLOL TARTRATE [Suspect]
     Dosage: 20  TABLETE ONCE
     Route: 048
     Dates: start: 20120312
  4. DIOVAN [Suspect]
     Indication: HYPERTENSION
     Dosage: UNK
     Route: 048
     Dates: start: 19940101
  5. METOPROLOL TARTRATE [Suspect]
     Indication: HYPERTENSION
     Dosage: UNK
     Route: 048
     Dates: start: 19940101

REACTIONS (4)
  - INSOMNIA [None]
  - SHOCK [None]
  - OVERDOSE [None]
  - BLOOD PRESSURE DECREASED [None]
